FAERS Safety Report 5441616-3 (Version None)
Quarter: 2007Q3

REPORT INFORMATION
  Report Type: 
  Country: None (occurrence: None)
  Receive Date: 20070829
  Receipt Date: 20070816
  Transmission Date: 20080115
  Serious: Yes (Hospitalization, Other)
  Sender: FDA-Public Use
  Company Number: 2005P1000382

PATIENT
  Age: 53 Year
  Sex: Male
  Weight: 86 kg

DRUGS (10)
  1. RETEPLASE (RETEPLASE) [Suspect]
     Indication: ACUTE MYOCARDIAL INFARCTION
     Dosage: 5 IU; BID; IV
     Route: 042
     Dates: start: 20041124, end: 20041124
  2. ABCIXIMAB (ABCIXIMAB) [Suspect]
     Indication: ACUTE MYOCARDIAL INFARCTION
     Dosage: 10 MG; X1; IV, 204 MG; X1; I V
     Route: 042
     Dates: start: 20041124, end: 20041124
  3. ABCIXIMAB (ABCIXIMAB) [Suspect]
     Indication: ACUTE MYOCARDIAL INFARCTION
     Dosage: 10 MG; X1; IV, 204 MG; X1; I V
     Route: 042
     Dates: start: 20041124, end: 20041124
  4. PLACEBO (PLACEBO) [Suspect]
     Indication: ACUTE MYOCARDIAL INFARCTION
     Dosage: 0.25 MG/KG; X1; IV
     Route: 042
     Dates: start: 20041124, end: 20041124
  5. ASPIRIN [Concomitant]
  6. CLOPIDOGREL [Concomitant]
  7. METOPROLOL SUCCINATE [Concomitant]
  8. ORGANIC NITRATES [Concomitant]
  9. RAMIPRIL [Concomitant]
  10. SIMVASTATIN [Concomitant]

REACTIONS (1)
  - CORONARY ARTERY STENOSIS [None]
